FAERS Safety Report 6361551-6 (Version None)
Quarter: 2009Q3

REPORT INFORMATION
  Report Type: 
  Country: None (occurrence: None)
  Receive Date: 20090918
  Receipt Date: 20090909
  Transmission Date: 20100115
  Serious: Yes (Hospitalization)
  Sender: FDA-Public Use
  Company Number: JP-ASTRAZENECA-2009SE12804

PATIENT
  Age: 65 Year
  Sex: Male
  Weight: 62.8 kg

DRUGS (7)
  1. MEROPEN [Suspect]
     Indication: FEBRILE NEUTROPENIA
     Route: 042
     Dates: start: 20090817, end: 20090821
  2. DIFLUCAN [Concomitant]
     Route: 048
  3. BAKTAR [Concomitant]
     Route: 048
  4. TAKEPRON OD [Concomitant]
     Route: 048
  5. MAGNESIUM OXIDE [Concomitant]
     Route: 048
  6. PREDONINE [Concomitant]
     Route: 048
  7. MYSLEE [Concomitant]
     Route: 048

REACTIONS (1)
  - HEPATIC FUNCTION ABNORMAL [None]
